FAERS Safety Report 6609897-8 (Version None)
Quarter: 2010Q1

REPORT INFORMATION
  Report Type: 
  Country: None (occurrence: None)
  Receive Date: 20100216
  Receipt Date: 20090114
  Transmission Date: 20100710
  Serious: Yes (Death)
  Sender: FDA-Public Use
  Company Number: MC200900010

PATIENT
  Age: 82 Year
  Sex: Female

DRUGS (5)
  1. ANGIOMAX [Suspect]
     Indication: PERCUTANEOUS CORONARY INTERVENTION
  2. INTEGRILIN [Concomitant]
  3. ASPIRIN [Concomitant]
  4. HEPARIN [Concomitant]
  5. PLAVIX [Concomitant]

REACTIONS (2)
  - COAGULATION TIME ABNORMAL [None]
  - GASTROINTESTINAL HAEMORRHAGE [None]
